FAERS Safety Report 20619515 (Version 1)
Quarter: 2022Q1

REPORT INFORMATION
  Report Type: Spontaneous
  Country: CA (occurrence: CA)
  Receive Date: 20220322
  Receipt Date: 20220322
  Transmission Date: 20220424
  Serious: Yes (Life-Threatening, Hospitalization, Other)
  Sender: FDA-Public Use
  Company Number: CA-SA-SAC20220317000445

PATIENT
  Age: 44 Year
  Sex: Female
  Weight: 97 kg

DRUGS (45)
  1. KEVZARA [Suspect]
     Active Substance: SARILUMAB
  2. ARAVA [Suspect]
     Active Substance: LEFLUNOMIDE
  3. DICLOFENAC [Suspect]
     Active Substance: DICLOFENAC
  4. HYDROCORTISONE ACETATE [Suspect]
     Active Substance: HYDROCORTISONE ACETATE
  5. HYDROXYCHLOROQUINE [Suspect]
     Active Substance: HYDROXYCHLOROQUINE
     Indication: Systemic lupus erythematosus
  6. DESOXIMETASONE [Suspect]
     Active Substance: DESOXIMETASONE
  7. DICLOFENAC POTASSIUM [Suspect]
     Active Substance: DICLOFENAC POTASSIUM
  8. LEFLUNOMIDE [Suspect]
     Active Substance: LEFLUNOMIDE
  9. METHOTREXATE [Suspect]
     Active Substance: METHOTREXATE
  10. OXYCODONE [Suspect]
     Active Substance: OXYCODONE
  11. PLAQUENIL [Suspect]
     Active Substance: HYDROXYCHLOROQUINE SULFATE
  12. TOPICORT [Suspect]
     Active Substance: DESOXIMETASONE
  13. OXYCODONE HYDROCHLORIDE [Suspect]
     Active Substance: OXYCODONE HYDROCHLORIDE
  14. FOLIC ACID [Suspect]
     Active Substance: FOLIC ACID
  15. CORTISONE ACETATE [Suspect]
     Active Substance: CORTISONE ACETATE
  16. ACETAMINOPHEN [Suspect]
     Active Substance: ACETAMINOPHEN
  17. ACTEMRA [Suspect]
     Active Substance: TOCILIZUMAB
  18. ALENDRONATE [Suspect]
     Active Substance: ALENDRONATE SODIUM
  19. PREDNISONE [Suspect]
     Active Substance: PREDNISONE
     Indication: Synovitis
  20. PREDNISONE [Suspect]
     Active Substance: PREDNISONE
     Indication: Systemic lupus erythematosus
  21. CETIRIZINE [Suspect]
     Active Substance: CETIRIZINE HYDROCHLORIDE
  22. METHOTREXATE SODIUM [Suspect]
     Active Substance: METHOTREXATE SODIUM
  23. CHLORHEXIDINE [Suspect]
     Active Substance: CHLORHEXIDINE
  24. CIMZIA [Suspect]
     Active Substance: CERTOLIZUMAB PEGOL
  25. ENBREL [Suspect]
     Active Substance: ETANERCEPT
  26. FOSAMAX [Suspect]
     Active Substance: ALENDRONATE SODIUM
  27. HUMIRA [Suspect]
     Active Substance: ADALIMUMAB
  28. INFLIXIMAB [Suspect]
     Active Substance: INFLIXIMAB
  29. ISOPROPYL ALCOHOL [Suspect]
     Active Substance: ISOPROPYL ALCOHOL
  30. ORENCIA [Suspect]
     Active Substance: ABATACEPT
  31. OXYCODONE TEREPHTHALATE [Suspect]
     Active Substance: OXYCODONE TEREPHTHALATE
  32. PERIOGARD [Suspect]
     Active Substance: CHLORHEXIDINE GLUCONATE
  33. PSEUDOEPHEDRINE [Suspect]
     Active Substance: PSEUDOEPHEDRINE
  34. CETIRIZINE HYDROCHLORIDE [Suspect]
     Active Substance: CETIRIZINE HYDROCHLORIDE
  35. REMICADE [Suspect]
     Active Substance: INFLIXIMAB
  36. RITUXAN [Suspect]
     Active Substance: RITUXIMAB
  37. RITUXIMAB [Suspect]
     Active Substance: RITUXIMAB
  38. SIMPONI [Suspect]
     Active Substance: GOLIMUMAB
  39. STELARA [Suspect]
     Active Substance: USTEKINUMAB
  40. XELJANZ [Suspect]
     Active Substance: TOFACITINIB CITRATE
  41. IBUPROFEN [Concomitant]
     Active Substance: IBUPROFEN
  42. SULFASALAZINE [Concomitant]
     Active Substance: SULFASALAZINE
  43. TYLENOL [Concomitant]
     Active Substance: ACETAMINOPHEN
  44. TYLENOL WITH CODEINE [Concomitant]
     Active Substance: ACETAMINOPHEN\CODEINE PHOSPHATE
  45. ACETAMINOPHEN [Concomitant]
     Active Substance: ACETAMINOPHEN

REACTIONS (13)
  - Arthropathy [Not Recovered/Not Resolved]
  - Ill-defined disorder [Not Recovered/Not Resolved]
  - Irritable bowel syndrome [Not Recovered/Not Resolved]
  - Pericarditis [Not Recovered/Not Resolved]
  - Pruritus [Not Recovered/Not Resolved]
  - Insomnia [Not Recovered/Not Resolved]
  - Stomatitis [Not Recovered/Not Resolved]
  - Swelling [Not Recovered/Not Resolved]
  - Synovitis [Not Recovered/Not Resolved]
  - Systemic lupus erythematosus [Not Recovered/Not Resolved]
  - Wound [Unknown]
  - Contusion [Unknown]
  - Rheumatoid factor positive [Unknown]
